FAERS Safety Report 20588971 (Version 1)
Quarter: 2022Q1

REPORT INFORMATION
  Report Type: Spontaneous
  Country: CN (occurrence: CN)
  Receive Date: 20220314
  Receipt Date: 20220314
  Transmission Date: 20220423
  Serious: Yes (Hospitalization, Other)
  Sender: FDA-Public Use
  Company Number: CN-NOVARTISPH-NVSC2022CN058300

PATIENT
  Age: 30 Year
  Sex: Female
  Weight: 58 kg

DRUGS (2)
  1. EMADINE [Suspect]
     Active Substance: EMEDASTINE DIFUMARATE
     Indication: Conjunctivitis allergic
     Dosage: 1 DRP, BID (1 DROP, 2 TIMES PER DAY)
     Route: 047
     Dates: start: 20220219, end: 20220219
  2. PRANOPROFEN [Suspect]
     Active Substance: PRANOPROFEN
     Indication: Conjunctivitis allergic
     Dosage: 1 DRP, QID (1 DROP 4 TIMES PER DAY)
     Route: 047
     Dates: start: 20220219, end: 20220219

REACTIONS (3)
  - Eye pruritus [Recovering/Resolving]
  - Conjunctival hyperaemia [Recovering/Resolving]
  - Eyelid oedema [Recovering/Resolving]

NARRATIVE: CASE EVENT DATE: 20220220
